FAERS Safety Report 7518352-2 (Version None)
Quarter: 2011Q2

REPORT INFORMATION
  Report Type: 
  Country: None (occurrence: None)
  Receive Date: 20110601
  Receipt Date: 20110601
  Transmission Date: 20111010
  Serious: Yes (Hospitalization)
  Sender: FDA-Public Use
  Company Number: None

PATIENT
  Age: 2 Year
  Sex: Female

DRUGS (2)
  1. MIDAZOLAM HCL [Suspect]
     Indication: SEDATION
     Dosage: 1 1
     Dates: start: 20100904, end: 20100904
  2. VERSED [Suspect]
     Indication: SEDATION
     Dosage: 1 1
     Dates: start: 20100904, end: 20100904

REACTIONS (6)
  - HALLUCINATION, VISUAL [None]
  - SCREAMING [None]
  - FATIGUE [None]
  - DYSPNOEA [None]
  - DISORIENTATION [None]
  - CRYING [None]
